FAERS Safety Report 5141731-8 (Version None)
Quarter: 2006Q4

REPORT INFORMATION
  Report Type: 
  Country: None (occurrence: None)
  Receive Date: 20061027
  Receipt Date: 20061010
  Transmission Date: 20070319
  Serious: Yes (Hospitalization)
  Sender: FDA-Public Use
  Company Number: AU200609005228

PATIENT
  Age: 83 Year
  Sex: Female
  Weight: 90 kg

DRUGS (3)
  1. EVISTA [Suspect]
     Indication: OSTEOPOROSIS
     Dosage: 60 MG
     Dates: end: 20060910
  2. PLAVIX [Concomitant]
  3. DIGOXIN [Concomitant]

REACTIONS (2)
  - ENDOMETRIAL CANCER [None]
  - UTERINE ENLARGEMENT [None]
